FAERS Safety Report 13847719 (Version 1)
Quarter: 2017Q3

REPORT INFORMATION
  Report Type: Spontaneous
  Country: US (occurrence: US)
  Receive Date: 20170808
  Receipt Date: 20170808
  Transmission Date: 20171127
  Serious: No
  Sender: FDA-Public Use
  Company Number: None

PATIENT
  Age: 49 Year
  Sex: Female

DRUGS (1)
  1. NINLARO [Suspect]
     Active Substance: IXAZOMIB
     Indication: PLASMA CELL MYELOMA
     Dosage: 4MG 1,8 AND 15 EVERY WEEK ORAL
     Route: 048
     Dates: start: 20160920, end: 20170807

REACTIONS (3)
  - Nausea [None]
  - Lethargy [None]
  - Dysgeusia [None]

NARRATIVE: CASE EVENT DATE: 20170807
